FAERS Safety Report 20428796 (Version 2)
Quarter: 2022Q2

REPORT INFORMATION
  Report Type: Spontaneous
  Country: CA (occurrence: CA)
  Receive Date: 20220204
  Receipt Date: 20220616
  Transmission Date: 20220721
  Serious: Yes (Other)
  Sender: FDA-Public Use
  Company Number: CA-drreddys-SPO/CAN/22/0146283

PATIENT
  Age: 81 Year
  Sex: Male

DRUGS (20)
  1. ATORVASTATIN [Suspect]
     Active Substance: ATORVASTATIN
     Indication: Product used for unknown indication
  2. AMLODIPINE BESYLATE [Suspect]
     Active Substance: AMLODIPINE BESYLATE
     Indication: Product used for unknown indication
  3. AVODART [Suspect]
     Active Substance: DUTASTERIDE
     Indication: Product used for unknown indication
  4. CANDESARTAN [Suspect]
     Active Substance: CANDESARTAN
     Indication: Hypertension
  5. CANDESARTAN [Suspect]
     Active Substance: CANDESARTAN
  6. DOMPERIDONE [Suspect]
     Active Substance: DOMPERIDONE
     Indication: Product used for unknown indication
  7. NITROGLYCERIN [Suspect]
     Active Substance: NITROGLYCERIN
     Indication: Product used for unknown indication
     Route: 060
  8. OMALIZUMAB [Suspect]
     Active Substance: OMALIZUMAB
     Indication: Asthma
  9. RABEPRAZOLE SODIUM [Suspect]
     Active Substance: RABEPRAZOLE SODIUM
     Indication: Product used for unknown indication
  10. PREDNISONE [Suspect]
     Active Substance: PREDNISONE
     Indication: Product used for unknown indication
  11. PREDNISONE [Suspect]
     Active Substance: PREDNISONE
     Indication: Asthma
  12. SUCRALFATE [Suspect]
     Active Substance: SUCRALFATE
     Indication: Product used for unknown indication
  13. TERBUTALINE SULFATE [Suspect]
     Active Substance: TERBUTALINE SULFATE
     Indication: Product used for unknown indication
  14. UMECLIDINIUM BROMIDE\VILANTEROL TRIFENATATE [Suspect]
     Active Substance: UMECLIDINIUM BROMIDE\VILANTEROL TRIFENATATE
     Indication: Product used for unknown indication
     Route: 055
  15. AMLODIPINE BESYLATE [Concomitant]
     Active Substance: AMLODIPINE BESYLATE
     Indication: Product used for unknown indication
  16. HUMAN IMMUNOGLOBULIN G [Concomitant]
     Active Substance: HUMAN IMMUNOGLOBULIN G
     Indication: Product used for unknown indication
  17. ALBUTEROL SULFATE\IPRATROPIUM BROMIDE [Concomitant]
     Active Substance: ALBUTEROL SULFATE\IPRATROPIUM BROMIDE
     Indication: Product used for unknown indication
     Route: 055
  18. PULMICORT TURBUHALER [Concomitant]
     Active Substance: BUDESONIDE
     Indication: Product used for unknown indication
  19. SINGULAIR [Concomitant]
     Active Substance: MONTELUKAST SODIUM
     Indication: Product used for unknown indication
  20. SPORANOX [Concomitant]
     Active Substance: ITRACONAZOLE
     Indication: Product used for unknown indication

REACTIONS (15)
  - Aspergillus infection [Unknown]
  - Asthma [Unknown]
  - Asthma-chronic obstructive pulmonary disease overlap syndrome [Unknown]
  - Blood immunoglobulin E increased [Unknown]
  - Bronchiectasis [Unknown]
  - Chronic obstructive pulmonary disease [Unknown]
  - Gastrooesophageal reflux disease [Unknown]
  - Obesity [Unknown]
  - Obstructive airways disorder [Unknown]
  - Pulmonary fibrosis [Unknown]
  - Rhinitis [Unknown]
  - Sputum increased [Unknown]
  - Wheezing [Unknown]
  - Cough [Unknown]
  - Dyspnoea [Unknown]
